FAERS Safety Report 24137374 (Version 1)
Quarter: 2024Q3

REPORT INFORMATION
  Report Type: Spontaneous
  Country: US (occurrence: US)
  Receive Date: 20240725
  Receipt Date: 20240725
  Transmission Date: 20241017
  Serious: No
  Sender: ROCHE
  Company Number: US-ROCHE-3575901

PATIENT
  Sex: Female

DRUGS (1)
  1. ACTEMRA [Suspect]
     Active Substance: TOCILIZUMAB
     Indication: Rheumatoid arthritis
     Dosage: STRENGTH: 162MG/0.9M
     Route: 058
     Dates: start: 202311

REACTIONS (6)
  - Dizziness [Unknown]
  - Muscle spasms [Unknown]
  - Vertigo [Unknown]
  - Fatigue [Unknown]
  - Eye pain [Unknown]
  - Pain in extremity [Unknown]
